FAERS Safety Report 19958865 (Version 1)
Quarter: 2021Q4

REPORT INFORMATION
  Report Type: Spontaneous
  Country: US (occurrence: US)
  Receive Date: 20211012
  Receipt Date: 20211012
  Transmission Date: 20220304
  Serious: No
  Sender: FDA-Public Use
  Company Number: None

PATIENT

DRUGS (2)
  1. REGEN-COV [Suspect]
     Active Substance: CASIRIVIMAB\IMDEVIMAB
  2. REGEN-COV [Suspect]
     Active Substance: CASIRIVIMAB\IMDEVIMAB

REACTIONS (2)
  - Product packaging confusion [None]
  - Product label confusion [None]
